FAERS Safety Report 7615709-6 (Version None)
Quarter: 2011Q3

REPORT INFORMATION
  Report Type: 
  Country: None (occurrence: None)
  Receive Date: 20110715
  Receipt Date: 20110715
  Transmission Date: 20111222
  Serious: Yes (Other)
  Sender: FDA-Public Use
  Company Number: None

PATIENT
  Sex: Female
  Weight: 62.1428 kg

DRUGS (3)
  1. MOVE FREE ADVANCED SCHIFF [Suspect]
     Indication: ARTHRALGIA
     Dosage: 2 TABS BID INJ
  2. IMODIUM [Concomitant]
  3. COLON HEALTH PROBIOTIC [Concomitant]

REACTIONS (1)
  - HEPATITIS ACUTE [None]
